FAERS Safety Report 16481939 (Version 1)
Quarter: 2019Q2

REPORT INFORMATION
  Report Type: Spontaneous
  Country: US (occurrence: US)
  Receive Date: 20190627
  Receipt Date: 20190627
  Transmission Date: 20190711
  Serious: Yes (Hospitalization, Other)
  Sender: FDA-Public Use
  Company Number: US-ABBVIE-19S-163-2832597-00

PATIENT
  Sex: Female
  Weight: 52.6 kg

DRUGS (3)
  1. ARMOUR THYROID [Concomitant]
     Active Substance: THYROID, PORCINE
     Indication: PRODUCT USED FOR UNKNOWN INDICATION
     Dates: start: 201904
  2. SYNTHROID [Suspect]
     Active Substance: LEVOTHYROXINE SODIUM
     Indication: PRODUCT USED FOR UNKNOWN INDICATION
     Route: 048
  3. CYTOMEL [Suspect]
     Active Substance: LIOTHYRONINE SODIUM
     Indication: HYPOTHYROIDISM
     Dosage: 50 MCG, TAKING FOR 40 SOMETHING YEARS, DISCONTINUED THEN RESTART ON 16 APR 2019
     Route: 048

REACTIONS (6)
  - Neck pain [Not Recovered/Not Resolved]
  - Hip fracture [Unknown]
  - Breast cancer [Unknown]
  - Malaise [Unknown]
  - Myocardial infarction [Recovered/Resolved]
  - Cataract [Unknown]

NARRATIVE: CASE EVENT DATE: 1987
